FAERS Safety Report 6979518-3 (Version None)
Quarter: 2010Q3

REPORT INFORMATION
  Report Type: 
  Country: None (occurrence: None)
  Receive Date: 20100910
  Receipt Date: 20100910
  Transmission Date: 20110219
  Serious: Yes (Hospitalization)
  Sender: FDA-Public Use
  Company Number: None

PATIENT
  Age: 78 Year
  Sex: Male
  Weight: 76 kg

DRUGS (1)
  1. PANITUMUMAB [Suspect]
     Indication: COLON CANCER
     Dosage: 450 MG ONCE IV
     Route: 042
     Dates: start: 20100817, end: 20100817

REACTIONS (1)
  - RASH [None]
